FAERS Safety Report 22165370 (Version 1)
Quarter: 2023Q2

REPORT INFORMATION
  Report Type: Spontaneous
  Country: JP (occurrence: JP)
  Receive Date: 20230403
  Receipt Date: 20230403
  Transmission Date: 20230722
  Serious: Yes (Death, Other)
  Sender: FDA-Public Use
  Company Number: JP-ASTELLAS-2022JP015762

PATIENT
  Age: 3 Day
  Sex: Male

DRUGS (11)
  1. MICAFUNGIN SODIUM [Suspect]
     Active Substance: MICAFUNGIN SODIUM
     Indication: Staphylococcal infection
     Route: 065
  2. INDOMETHACIN [Suspect]
     Active Substance: INDOMETHACIN
     Indication: Product used for unknown indication
     Dosage: 50 MG, TOTAL FOUR TIMES IN THE PERIOPERATIVE PERIOD
     Route: 064
  3. VANCOMYCIN [Suspect]
     Active Substance: VANCOMYCIN
     Indication: Staphylococcal infection
     Route: 065
  4. AMPICILLIN [Concomitant]
     Active Substance: AMPICILLIN
     Indication: Intrauterine infection
     Route: 065
  5. CEFOTAXIME SODIUM [Concomitant]
     Active Substance: CEFOTAXIME SODIUM
     Indication: Intrauterine infection
     Route: 065
  6. FLUCONAZOLE [Concomitant]
     Active Substance: FLUCONAZOLE
     Indication: Intrauterine infection
     Route: 065
  7. FUROSEMIDE [Concomitant]
     Active Substance: FUROSEMIDE
     Indication: Anuria
     Dosage: UNK UNK, UNKNOWN FREQ.
     Route: 065
  8. FUROSEMIDE [Concomitant]
     Active Substance: FUROSEMIDE
     Dosage: UNK UNK, UNKNOWN FREQ.
     Route: 065
  9. MEROPENEM [Concomitant]
     Active Substance: MEROPENEM
     Indication: Staphylococcal infection
     Route: 065
  10. MANNITOL [Concomitant]
     Active Substance: MANNITOL
     Indication: Oliguria
     Dosage: UNK UNK, UNKNOWN FREQ.
     Route: 065
  11. IBUPROFEN [Concomitant]
     Active Substance: IBUPROFEN
     Indication: Product used for unknown indication
     Route: 065

REACTIONS (13)
  - Multiple organ dysfunction syndrome [Fatal]
  - Renal ischaemia [Unknown]
  - Intestinal perforation [Unknown]
  - Intestinal perforation [Unknown]
  - Arrhythmia [Unknown]
  - Haemorrhagic diathesis [Unknown]
  - Pericardial effusion [Unknown]
  - Intestinal perforation [Unknown]
  - Renal impairment [Recovering/Resolving]
  - Oedema [Unknown]
  - Decubitus ulcer [Unknown]
  - Blood potassium increased [Unknown]
  - Off label use [Unknown]
